FAERS Safety Report 9656857 (Version 1)
Quarter: 2013Q4

REPORT INFORMATION
  Report Type: Spontaneous
  Country: JP (occurrence: JP)
  Receive Date: 20131030
  Receipt Date: 20131030
  Transmission Date: 20140711
  Serious: Yes (Hospitalization)
  Sender: FDA-Public Use
  Company Number: JP-PFIZER INC-2013305523

PATIENT
  Age: 87 Year
  Sex: Female

DRUGS (1)
  1. CABASER [Suspect]
     Indication: PARKINSON^S DISEASE
     Dosage: 1 MG, DAILY
     Route: 048
     Dates: end: 20131014

REACTIONS (1)
  - Pyrexia [Unknown]
